FAERS Safety Report 7105738-3 (Version None)
Quarter: 2010Q4

REPORT INFORMATION
  Report Type: 
  Country: None (occurrence: None)
  Receive Date: 20101116
  Receipt Date: 20101112
  Transmission Date: 20110411
  Serious: Yes (Death)
  Sender: FDA-Public Use
  Company Number: PHHY2010US75953

PATIENT
  Sex: Male
  Weight: 73.469 kg

DRUGS (1)
  1. EXJADE [Suspect]
     Indication: MALAISE
     Dosage: 1500 MG DAILY
     Route: 048
     Dates: start: 20100430

REACTIONS (1)
  - DEATH [None]
